FAERS Safety Report 5584754-7 (Version None)
Quarter: 2008Q1

REPORT INFORMATION
  Report Type: 
  Country: None (occurrence: None)
  Receive Date: 20080103
  Receipt Date: 20071218
  Transmission Date: 20080703
  Serious: Yes (Hospitalization)
  Sender: FDA-Public Use
  Company Number: TCI2007A06836

PATIENT
  Age: 82 Year
  Sex: Male

DRUGS (8)
  1. ACTOS [Suspect]
     Dosage: 15 MG (15 MG, 1 IN 1 D) PER ORAL
     Route: 048
     Dates: start: 20071004, end: 20071113
  2. TAMSULOSIN HCL [Concomitant]
  3. RISPERDAL [Concomitant]
  4. DEPAKENE [Concomitant]
  5. UBRETID (DISTIGMINE BROMIDE) [Concomitant]
  6. MAGLAX (MAGNESIUM OXIDE) [Concomitant]
  7. ZOPICOOL (ZOPICLONE) [Concomitant]
  8. INSULIN HUMAN [Concomitant]

REACTIONS (6)
  - DELIRIUM [None]
  - DISSEMINATED INTRAVASCULAR COAGULATION [None]
  - HYPOTHERMIA [None]
  - LOSS OF CONSCIOUSNESS [None]
  - PNEUMONIA [None]
  - RESPIRATORY ARREST [None]
